FAERS Safety Report 24958681 (Version 1)
Quarter: 2025Q1

REPORT INFORMATION
  Report Type: Spontaneous
  Country: US (occurrence: US)
  Receive Date: 20250212
  Receipt Date: 20250212
  Transmission Date: 20250409
  Serious: No
  Sender: AJANTA PHARMA USA INC
  Company Number: US-AJANTA-2025AJA00013

PATIENT
  Age: 73 Year
  Sex: Female
  Weight: 112 kg

DRUGS (4)
  1. DULOXETINE [Suspect]
     Active Substance: DULOXETINE
     Indication: Neuralgia
     Dates: start: 20241220, end: 20250127
  2. PHENOBARBITAL [Concomitant]
     Active Substance: PHENOBARBITAL
  3. POTASSIUM [Concomitant]
     Active Substance: POTASSIUM
  4. CRESTOR [Concomitant]
     Active Substance: ROSUVASTATIN CALCIUM

REACTIONS (2)
  - Pruritus [Unknown]
  - Rash [Unknown]

NARRATIVE: CASE EVENT DATE: 20250101
